FAERS Safety Report 24391853 (Version 2)
Quarter: 2024Q4

REPORT INFORMATION
  Report Type: Spontaneous
  Country: JP (occurrence: JP)
  Receive Date: 20241003
  Receipt Date: 20241024
  Transmission Date: 20250115
  Serious: Yes (Death, Other)
  Sender: OTSUKA
  Company Number: JP-OTSUKA-2024_027000AA

PATIENT
  Age: 55 Year
  Sex: Male

DRUGS (1)
  1. SAMSCA [Suspect]
     Active Substance: TOLVAPTAN
     Indication: Hepatic cirrhosis
     Dosage: 7.5 MG/DAY
     Route: 048

REACTIONS (3)
  - Acute kidney injury [Fatal]
  - Acute hepatic failure [Fatal]
  - Dehydration [Fatal]
